FAERS Safety Report 18894277 (Version 1)
Quarter: 2021Q1

REPORT INFORMATION
  Report Type: Spontaneous
  Country: US (occurrence: US)
  Receive Date: 20210215
  Receipt Date: 20210215
  Transmission Date: 20210420
  Serious: Yes (Life-Threatening, Hospitalization)
  Sender: FDA-Public Use
  Company Number: US-TEVA-2021-US-1879727

PATIENT
  Age: 20 Year
  Sex: Female

DRUGS (5)
  1. DEXTROSE. [Concomitant]
     Active Substance: DEXTROSE
     Indication: TOXICITY TO VARIOUS AGENTS
     Route: 050
  2. SODIUM BICARBONATE. [Concomitant]
     Active Substance: SODIUM BICARBONATE
     Indication: TOXICITY TO VARIOUS AGENTS
     Route: 065
  3. VERAPAMIL [Suspect]
     Active Substance: VERAPAMIL HYDROCHLORIDE
     Indication: INTENTIONAL OVERDOSE
     Dosage: THE WOMAN INTENTIONALLY INGESTED APPROXIMATELY FORTY 240?MG TABLETS OF VERAPAMIL
     Route: 048
  4. KETAMINE [Concomitant]
     Active Substance: KETAMINE
     Indication: SEDATION
     Dosage: INTERMITTENT KETAMINE (1 MG/ KG) BOLUSES
     Route: 050
  5. NOREPINEPHRINE. [Concomitant]
     Active Substance: NOREPINEPHRINE
     Indication: TOXICITY TO VARIOUS AGENTS
     Route: 050

REACTIONS (16)
  - Atrioventricular block first degree [Recovering/Resolving]
  - Mental status changes [Unknown]
  - Cardiogenic shock [Recovering/Resolving]
  - Toxicity to various agents [Recovering/Resolving]
  - Vomiting [Unknown]
  - Acidosis [Recovering/Resolving]
  - Intentional overdose [Unknown]
  - Sinus bradycardia [Recovering/Resolving]
  - Renal tubular necrosis [Unknown]
  - Thrombosis [Unknown]
  - Hypotension [Recovering/Resolving]
  - Tricuspid valve disease [Unknown]
  - Depressed level of consciousness [Unknown]
  - Mental impairment [Unknown]
  - Pneumonia aspiration [Unknown]
  - Acute kidney injury [Unknown]
